FAERS Safety Report 13573817 (Version 5)
Quarter: 2018Q2

REPORT INFORMATION
  Report Type: Report from Study
  Country: BR (occurrence: BR)
  Receive Date: 20170523
  Receipt Date: 20180423
  Transmission Date: 20180711
  Serious: Yes (Other)
  Sender: FDA-Public Use
  Company Number: BR-ELI_LILLY_AND_COMPANY-BR201705008094

PATIENT
  Age: 60 Year
  Sex: Male

DRUGS (4)
  1. CETUXIMAB. [Suspect]
     Active Substance: CETUXIMAB
     Dosage: (10 VIALS PER INFUSION) 970 MILLILITER
     Route: 042
     Dates: end: 201704
  2. CETUXIMAB. [Suspect]
     Active Substance: CETUXIMAB
     Dosage: (10 VIALS PER INFUSION) 970 MILLILITER
     Route: 042
  3. CETUXIMAB. [Suspect]
     Active Substance: CETUXIMAB
     Dosage: (10 VIALS PER INFUSION) 970 MILLILITER
     Route: 042
     Dates: start: 201710
  4. CETUXIMAB. [Suspect]
     Active Substance: CETUXIMAB
     Indication: COLORECTAL CANCER METASTATIC
     Dosage: (10 VIALS PER INFUSION) 970 MILLILITER
     Route: 042
     Dates: start: 20170416

REACTIONS (6)
  - Oral candidiasis [Unknown]
  - Skin reaction [Recovering/Resolving]
  - Pharyngeal haemorrhage [Recovered/Resolved]
  - Epistaxis [Recovered/Resolved]
  - Oropharyngeal pain [Not Recovered/Not Resolved]
  - Mouth ulceration [Recovering/Resolving]

NARRATIVE: CASE EVENT DATE: 201704
